FAERS Safety Report 24623614 (Version 2)
Quarter: 2024Q4

REPORT INFORMATION
  Report Type: Spontaneous
  Country: JP (occurrence: JP)
  Receive Date: 20241115
  Receipt Date: 20241121
  Transmission Date: 20250114
  Serious: Yes (Hospitalization, Other)
  Sender: PHARMAESSENTIA
  Company Number: JP-PHARMAESSENTIA CORPORATION-JP-2024-PEC-005109

PATIENT
  Age: 78 Year
  Sex: Female

DRUGS (4)
  1. BESREMI [Suspect]
     Active Substance: ROPEGINTERFERON ALFA-2B-NJFT
     Indication: Polycythaemia vera
     Dosage: 50 MCG
     Route: 058
     Dates: start: 20241008
  2. BESREMI [Suspect]
     Active Substance: ROPEGINTERFERON ALFA-2B-NJFT
     Dosage: 100 MCG, Q2W
     Route: 058
     Dates: start: 20241022
  3. RUXOLITINIB [Concomitant]
     Active Substance: RUXOLITINIB
     Indication: Polycythaemia vera
     Dosage: 40 MG
     Route: 065
     Dates: start: 20241008
  4. RUXOLITINIB [Concomitant]
     Active Substance: RUXOLITINIB
     Dosage: 30 MG
     Route: 065
     Dates: start: 20241022

REACTIONS (4)
  - Hyponatraemia [Recovered/Resolved]
  - Hepatic function abnormal [Unknown]
  - C-reactive protein increased [Unknown]
  - Atrial fibrillation [Unknown]

NARRATIVE: CASE EVENT DATE: 20241030
